FAERS Safety Report 12958224 (Version 1)
Quarter: 2016Q4

REPORT INFORMATION
  Report Type: Spontaneous
  Country: NL (occurrence: NL)
  Receive Date: 20161120
  Receipt Date: 20161120
  Transmission Date: 20170207
  Serious: Yes (Other)
  Sender: FDA-Public Use
  Company Number: NL-ROCHE-1856794

PATIENT
  Sex: Female
  Weight: 60 kg

DRUGS (3)
  1. KADCYLA [Suspect]
     Active Substance: ADO-TRASTUZUMAB EMTANSINE
     Dosage: 1 FLASK 100MG AND 1 FLASK OF 160MG
     Route: 042
     Dates: start: 20160819
  2. KADCYLA [Suspect]
     Active Substance: ADO-TRASTUZUMAB EMTANSINE
     Indication: BREAST CANCER
     Dosage: 1 FLASK 100MG AND 1 FLASK OF 160MG
     Route: 042
     Dates: start: 20160729, end: 20161003
  3. KADCYLA [Suspect]
     Active Substance: ADO-TRASTUZUMAB EMTANSINE
     Dosage: 1 FLASK 100MG AND 1 FLASK OF 160MG
     Route: 042
     Dates: start: 20160909

REACTIONS (2)
  - Disease progression [Unknown]
  - Drug ineffective [Unknown]
